FAERS Safety Report 24346857 (Version 1)
Quarter: 2024Q3

REPORT INFORMATION
  Report Type: Report from Study
  Country: US (occurrence: US)
  Receive Date: 20240921
  Receipt Date: 20240921
  Transmission Date: 20241017
  Serious: Yes (Other)
  Sender: ABBVIE
  Company Number: US-ABBVIE-5928515

PATIENT
  Age: 87 Year
  Sex: Female

DRUGS (1)
  1. SKYRIZI [Suspect]
     Active Substance: RISANKIZUMAB-RZAA
     Indication: Psoriasis
     Route: 058
     Dates: start: 20191113

REACTIONS (3)
  - Cardiac pacemaker replacement [Not Recovered/Not Resolved]
  - Unevaluable event [Unknown]
  - Mental impairment [Unknown]

NARRATIVE: CASE EVENT DATE: 20240917
